FAERS Safety Report 6218239-1 (Version None)
Quarter: 2009Q2

REPORT INFORMATION
  Report Type: 
  Country: None (occurrence: None)
  Receive Date: 20090608
  Receipt Date: 20090528
  Transmission Date: 20091009
  Serious: Yes (Other)
  Sender: FDA-Public Use
  Company Number: B0576329A

PATIENT
  Sex: Female

DRUGS (1)
  1. ALLI [Suspect]
     Dosage: 60MG THREE TIMES PER DAY
     Route: 065
     Dates: start: 20090517, end: 20090520

REACTIONS (2)
  - HAEMATOCHEZIA [None]
  - INTESTINAL HAEMORRHAGE [None]
